FAERS Safety Report 4546590-X (Version None)
Quarter: 2005Q1

REPORT INFORMATION
  Report Type: 
  Country: None (occurrence: None)
  Receive Date: 20050103
  Receipt Date: 20041215
  Transmission Date: 20050727
  Serious: Yes (Death, Life-Threatening, Other)
  Sender: FDA-Public Use
  Company Number: EWC040940794

PATIENT
  Age: 57 Year
  Sex: Female

DRUGS (18)
  1. XIGRIS [Suspect]
     Indication: MULTI-ORGAN FAILURE
     Dosage: 24 UG/KG/HR
     Route: 042
     Dates: start: 20040820, end: 20040824
  2. XIGRIS [Suspect]
     Indication: SEPSIS
     Dosage: 24 UG/KG/HR
     Route: 042
     Dates: start: 20040820, end: 20040824
  3. IMIPENEM [Concomitant]
  4. NORADRENALINE [Concomitant]
  5. FRAXIPARINE (NADROPARIN CALCIUM) [Concomitant]
  6. METRONIDAZOLE [Concomitant]
  7. VITAMIN K [Concomitant]
  8. ALBUMIN (HUMAN) [Concomitant]
  9. DOBUTAMINE HCL [Concomitant]
  10. FUROSEMIDE [Concomitant]
  11. DIGOXIN [Concomitant]
  12. FLUCONAZOLE [Concomitant]
  13. VANCOMYCIN [Concomitant]
  14. OMEPRAZOL (OMEPRAZOLE RATIOPHARM) [Concomitant]
  15. DOLANTINE (PETHIDINE HYDROCHLORIDE) [Concomitant]
  16. PRIMPERAN ELIXIR [Concomitant]
  17. DOPAMINE [Concomitant]
  18. ENOXAPARIN SODIUM [Concomitant]

REACTIONS (5)
  - ESCHERICHIA INFECTION [None]
  - HAEMORRHAGE INTRACRANIAL [None]
  - PROTEUS INFECTION [None]
  - SUPRAVENTRICULAR TACHYCARDIA [None]
  - THROMBOCYTOPENIA [None]
